FAERS Safety Report 9245549 (Version 1)
Quarter: 2013Q1

REPORT INFORMATION
  Report Type: Spontaneous
  Country: US (occurrence: None)
  Receive Date: 20121130
  Receipt Date: 20121130
  Transmission Date: 20140127
  Serious: Yes (Other)
  Sender: FDA-Public Use
  Company Number: 343120

PATIENT
  Age: 73 Year
  Sex: Male

DRUGS (2)
  1. NOVOLOG [Suspect]
     Indication: TYPE 2 DIABETES MELLITUS
     Dosage: 20 U, BID, SUBCUTANEOUS
     Route: 058
  2. PLAVIX (CLOPIDOGREL BISULFATE) [Concomitant]

REACTIONS (4)
  - Blood glucose decreased [None]
  - Paraesthesia [None]
  - Gait disturbance [None]
  - Presyncope [None]
